FAERS Safety Report 21363757 (Version 1)
Quarter: 2022Q3

REPORT INFORMATION
  Report Type: Spontaneous
  Country: US (occurrence: US)
  Receive Date: 20220922
  Receipt Date: 20220922
  Transmission Date: 20221027
  Serious: Yes (Death, Other)
  Sender: FDA-Public Use
  Company Number: US-BRISTOL-MYERS SQUIBB COMPANY-2022-109525

PATIENT
  Age: 76 Year
  Sex: Male
  Weight: 58.51 kg

DRUGS (2)
  1. ELIQUIS [Suspect]
     Active Substance: APIXABAN
     Indication: Portal vein thrombosis
     Dosage: DOSE : 5 MG;     FREQ : EVERY 12 HOURS
     Route: 048
     Dates: start: 2018
  2. ELIQUIS [Suspect]
     Active Substance: APIXABAN
     Indication: Deep vein thrombosis

REACTIONS (2)
  - Cardiac failure [Fatal]
  - Weight decreased [Unknown]

NARRATIVE: CASE EVENT DATE: 20220825
